FAERS Safety Report 14940146 (Version 1)
Quarter: 2018Q2

REPORT INFORMATION
  Report Type: Spontaneous
  Country: US (occurrence: US)
  Receive Date: 20180525
  Receipt Date: 20180525
  Transmission Date: 20180711
  Serious: Yes (Hospitalization, Other)
  Sender: FDA-Public Use
  Company Number: US-009507513-1805USA006383

PATIENT
  Age: 68 Year
  Sex: Male
  Weight: 82.54 kg

DRUGS (9)
  1. BETAPACE [Concomitant]
     Active Substance: SOTALOL HYDROCHLORIDE
     Dosage: 80 MG, 2 TIMES DAILY
     Route: 048
     Dates: start: 20180208
  2. NOVOLOG [Concomitant]
     Active Substance: INSULIN ASPART
     Dosage: 8 IU, THREE TIMES A DAY
     Route: 058
     Dates: start: 20180413
  3. NORCO [Concomitant]
     Active Substance: ACETAMINOPHEN\HYDROCODONE BITARTRATE
     Dosage: 0.5 TABLETS, PRN
     Route: 048
     Dates: start: 20180323
  4. LEVEMIR [Concomitant]
     Active Substance: INSULIN DETEMIR
     Dosage: 14 IU, EVERY MORNING BEFORE BREAKFAST
     Route: 058
  5. SYNTHROID [Concomitant]
     Active Substance: LEVOTHYROXINE SODIUM
     Dosage: 125 MICROGRAM, EVERY MORNING
     Route: 048
     Dates: start: 20180208
  6. KEPPRA [Concomitant]
     Active Substance: LEVETIRACETAM
     Dosage: 750 MG, 2 TIMES DAILY
     Route: 048
     Dates: start: 20180302
  7. TEMODAR [Suspect]
     Active Substance: TEMOZOLOMIDE
     Indication: GLIOBLASTOMA MULTIFORME
     Dosage: UNK
     Route: 048
  8. COZAAR [Suspect]
     Active Substance: LOSARTAN POTASSIUM
     Dosage: 25 MG, QD
     Route: 048
     Dates: start: 20180405
  9. LEVOTHROID [Concomitant]
     Active Substance: LEVOTHYROXINE SODIUM
     Dosage: 125 MICROGRAM, EVERY MORNING
     Route: 048
     Dates: start: 20180208

REACTIONS (8)
  - Pain [Unknown]
  - Aphasia [Not Recovered/Not Resolved]
  - Knee arthroplasty [Unknown]
  - Cerebral haemorrhage [Recovered/Resolved]
  - Procedural haemorrhage [Recovered/Resolved]
  - Post procedural haemorrhage [Recovered/Resolved]
  - Malignant neoplasm progression [Unknown]
  - Cognitive disorder [Not Recovered/Not Resolved]

NARRATIVE: CASE EVENT DATE: 201607
